FAERS Safety Report 23588331 (Version 1)
Quarter: 2024Q1

REPORT INFORMATION
  Report Type: Spontaneous
  Country: FR (occurrence: FR)
  Receive Date: 20240302
  Receipt Date: 20240302
  Transmission Date: 20240409
  Serious: Yes (Other)
  Sender: FDA-Public Use
  Company Number: FR-AFSSAPS-RN2024000161

PATIENT
  Age: 19 Year
  Sex: Female

DRUGS (1)
  1. IBUPROFEN [Suspect]
     Active Substance: IBUPROFEN
     Indication: Dental care
     Dosage: UNK
     Route: 048
     Dates: start: 202301, end: 202301

REACTIONS (1)
  - Eyelid oedema [Recovered/Resolved]

NARRATIVE: CASE EVENT DATE: 20230101
